FAERS Safety Report 6781198-7 (Version None)
Quarter: 2010Q2

REPORT INFORMATION
  Report Type: 
  Country: None (occurrence: None)
  Receive Date: 20100621
  Receipt Date: 20100609
  Transmission Date: 20101027
  Serious: Yes (Other)
  Sender: FDA-Public Use
  Company Number: DE-PFIZER INC-2010045204

PATIENT
  Age: 69 Year
  Sex: Male
  Weight: 87 kg

DRUGS (6)
  1. SUTENT [Suspect]
     Indication: RENAL CELL CARCINOMA
     Dosage: 50 MG, 1X/DAY, 6 TIMES PER WEEK
     Route: 048
     Dates: end: 20090212
  2. SUTENT [Suspect]
     Dosage: UNK
     Dates: start: 20090723, end: 20100218
  3. OLMETEC PLUS [Concomitant]
     Dosage: 20/25 MG
  4. ALLOPURINOL [Concomitant]
     Dosage: 100 MG, 1X/DAY
  5. METOPROLOL SUCCINATE [Concomitant]
  6. METOCLOPRAMIDE [Concomitant]
     Indication: NAUSEA
     Dosage: UNK

REACTIONS (8)
  - ANAL ABSCESS [None]
  - ASTHENIA [None]
  - DIARRHOEA [None]
  - HYPERTONIA [None]
  - HYPOTHYROIDISM [None]
  - PALMAR-PLANTAR ERYTHRODYSAESTHESIA SYNDROME [None]
  - TOOTH DISORDER [None]
  - YELLOW SKIN [None]
